FAERS Safety Report 24595542 (Version 2)
Quarter: 2024Q4

REPORT INFORMATION
  Report Type: Report from Study
  Country: IE (occurrence: IE)
  Receive Date: 20241109
  Receipt Date: 20241122
  Transmission Date: 20250114
  Serious: No
  Sender: ABBVIE
  Company Number: IE-ABBVIE-5839813

PATIENT
  Age: 75 Year
  Sex: Male

DRUGS (22)
  1. FOSCARBIDOPA\FOSLEVODOPA [Suspect]
     Active Substance: FOSCARBIDOPA\FOSLEVODOPA
     Indication: Parkinson^s disease
     Dosage: 1 VIAL, PRODUODOPA BASE RATE
     Route: 058
     Dates: start: 20240708, end: 20240709
  2. FOSCARBIDOPA\FOSLEVODOPA [Suspect]
     Active Substance: FOSCARBIDOPA\FOSLEVODOPA
     Dosage: BASE RATE REDUCED TO 0.27ML, LOW RATE REDUCED TO 0.21ML, LOADING DOSE: 1.5ML. PRODUODOPA BASE RATE
     Route: 058
     Dates: start: 20240709, end: 20240717
  3. FOSCARBIDOPA\FOSLEVODOPA [Suspect]
     Active Substance: FOSCARBIDOPA\FOSLEVODOPA
     Dosage: BASE RATE 0.3ML, PRODUODOPA BASE RATE, STOP DATE: JUL 2024
     Route: 058
     Dates: start: 20240717
  4. FOSCARBIDOPA\FOSLEVODOPA [Suspect]
     Active Substance: FOSCARBIDOPA\FOSLEVODOPA
     Dosage: BASE RATE 0.39ML/HR AND LOW RATE 0.20ML/HR, PRODUODOPA BASE RATE
     Route: 058
     Dates: start: 2024
  5. FOSCARBIDOPA\FOSLEVODOPA [Suspect]
     Active Substance: FOSCARBIDOPA\FOSLEVODOPA
     Dosage: BASE RATE 0.40ML AND LOW RATE 0.19ML, AND HIGH RATE 0.40ML, PRODUODOPA BASE RATE
     Route: 058
     Dates: start: 2024, end: 2024
  6. FOSCARBIDOPA\FOSLEVODOPA [Suspect]
     Active Substance: FOSCARBIDOPA\FOSLEVODOPA
     Dosage: BASE RATE 0.4 ML. LOW RATE 0.2ML, PRODUODOPA BASE RATE
     Route: 058
     Dates: start: 2024, end: 2024
  7. FOSCARBIDOPA\FOSLEVODOPA [Suspect]
     Active Substance: FOSCARBIDOPA\FOSLEVODOPA
     Dosage: BASE RATE 0.36ML, PRODUODOPA BASE RATE
     Route: 058
     Dates: start: 202407, end: 202408
  8. APOMORPHINE [Concomitant]
     Active Substance: APOMORPHINE
     Indication: Product used for unknown indication
     Dosage: CONTINUOUS
     Route: 050
  9. ZOPICLONE [Concomitant]
     Active Substance: ZOPICLONE
     Indication: Product used for unknown indication
     Dosage: AT NIGHT
     Route: 050
  10. SYMMETREL [Concomitant]
     Active Substance: AMANTADINE HYDROCHLORIDE
     Indication: Product used for unknown indication
     Route: 050
  11. SINEMET [Concomitant]
     Active Substance: CARBIDOPA\LEVODOPA
     Indication: Product used for unknown indication
     Route: 050
  12. ATROPINE [Concomitant]
     Active Substance: ATROPINE
     Indication: Product used for unknown indication
     Route: 050
  13. QUETIAPINE [Concomitant]
     Active Substance: QUETIAPINE
     Indication: Product used for unknown indication
     Dosage: (1 X AM, 3 X NOCTE) PER DOSE
     Route: 050
  14. ASPIRIN [Concomitant]
     Active Substance: ASPIRIN
     Indication: Product used for unknown indication
     Route: 050
  15. ELDEPRYL [Concomitant]
     Active Substance: SELEGILINE HYDROCHLORIDE
     Indication: Product used for unknown indication
     Route: 050
  16. RIVASTIGMINE [Concomitant]
     Active Substance: RIVASTIGMINE
     Indication: Product used for unknown indication
     Dosage: ( 2 X AM, 2 X NOCTE) PER DOSE
     Route: 050
  17. NEXIUM [Concomitant]
     Active Substance: ESOMEPRAZOLE MAGNESIUM
     Indication: Product used for unknown indication
     Route: 050
  18. MIDODRINE [Concomitant]
     Active Substance: MIDODRINE
     Indication: Product used for unknown indication
     Dosage: TIME INTERVAL: 0.33333333 DAYS: 2.5 MG
     Route: 050
  19. VALSARTAN [Concomitant]
     Active Substance: VALSARTAN
     Indication: Product used for unknown indication
     Route: 050
  20. ZOLPIDEM TARTRATE [Concomitant]
     Active Substance: ZOLPIDEM TARTRATE
     Indication: Product used for unknown indication
     Route: 050
  21. STALEVO [Concomitant]
     Active Substance: CARBIDOPA\ENTACAPONE\LEVODOPA
     Indication: Product used for unknown indication
     Route: 050
  22. AZILECT [Concomitant]
     Active Substance: RASAGILINE MESYLATE
     Indication: Product used for unknown indication
     Route: 050

REACTIONS (31)
  - Anxiety [Not Recovered/Not Resolved]
  - Dyskinesia [Recovered/Resolved]
  - On and off phenomenon [Recovered/Resolved]
  - Dyskinesia [Recovered/Resolved]
  - Gait disturbance [Recovered/Resolved]
  - Mobility decreased [Recovering/Resolving]
  - Feeling abnormal [Not Recovered/Not Resolved]
  - Nausea [Not Recovered/Not Resolved]
  - Bradykinesia [Not Recovered/Not Resolved]
  - Device issue [Unknown]
  - General symptom [Recovering/Resolving]
  - Gait disturbance [Not Recovered/Not Resolved]
  - On and off phenomenon [Recovered/Resolved]
  - Lethargy [Recovered/Resolved]
  - Freezing phenomenon [Recovered/Resolved]
  - Infusion site nodule [Recovering/Resolving]
  - Gait disturbance [Recovered/Resolved]
  - Feeling abnormal [Recovering/Resolving]
  - Foot deformity [Not Recovered/Not Resolved]
  - Device dislocation [Recovered/Resolved]
  - Tremor [Not Recovered/Not Resolved]
  - Musculoskeletal stiffness [Recovering/Resolving]
  - Device alarm issue [Unknown]
  - Device use issue [Unknown]
  - Fine motor skill dysfunction [Recovered/Resolved]
  - Device use issue [Unknown]
  - Hallucination [Unknown]
  - Therapeutic response shortened [Not Recovered/Not Resolved]
  - On and off phenomenon [Not Recovered/Not Resolved]
  - Bradykinesia [Recovered/Resolved]
  - Blood pressure fluctuation [Unknown]

NARRATIVE: CASE EVENT DATE: 20240101
